FAERS Safety Report 20030386 (Version 1)
Quarter: 2021Q4

REPORT INFORMATION
  Report Type: Spontaneous
  Country: FR (occurrence: FR)
  Receive Date: 20211103
  Receipt Date: 20211103
  Transmission Date: 20220303
  Serious: Yes (Death, Other)
  Sender: FDA-Public Use
  Company Number: FR-NOVARTISPH-NVSC2021FR250508

PATIENT
  Age: 65 Year
  Sex: Female
  Weight: 76 kg

DRUGS (22)
  1. VALACYCLOVIR HYDROCHLORIDE [Suspect]
     Active Substance: VALACYCLOVIR HYDROCHLORIDE
     Indication: Antiviral prophylaxis
     Dosage: 100 MG
     Route: 048
     Dates: start: 20210324
  2. APREPITANT [Suspect]
     Active Substance: APREPITANT
     Indication: Vomiting
     Dosage: UNK (125 A 80 MG)
     Route: 048
     Dates: start: 20210802, end: 20210806
  3. APREPITANT [Suspect]
     Active Substance: APREPITANT
     Indication: Nausea
  4. ONDANSETRON [Suspect]
     Active Substance: ONDANSETRON
     Indication: Nausea
     Dosage: 24 MG
     Route: 042
     Dates: start: 20210802, end: 20210806
  5. ONDANSETRON [Suspect]
     Active Substance: ONDANSETRON
     Indication: Vomiting
  6. PANTOPRAZOLE [Suspect]
     Active Substance: PANTOPRAZOLE
     Indication: Hyperchlorhydria
     Dosage: 40 MG
     Route: 048
     Dates: start: 20210323
  7. PIPERACILLIN AND TAZOBACTAM [Suspect]
     Active Substance: PIPERACILLIN SODIUM\TAZOBACTAM SODIUM
     Indication: Infection
     Dosage: 16 G
     Route: 042
     Dates: start: 20210805, end: 20210810
  8. ACETAMINOPHEN [Suspect]
     Active Substance: ACETAMINOPHEN
     Indication: Antipyresis
     Dosage: 4 G
     Route: 042
     Dates: start: 20210808
  9. IMIPENEM AND CILASTATIN [Suspect]
     Active Substance: CILASTATIN SODIUM\IMIPENEM
     Indication: Infection
     Dosage: 3 G
     Route: 065
     Dates: start: 20210810
  10. VANCOMYCIN [Suspect]
     Active Substance: VANCOMYCIN
     Indication: Infection
     Dosage: 2 G
     Route: 042
     Dates: start: 20210808, end: 20210810
  11. ZOFENOPRIL [Suspect]
     Active Substance: ZOFENOPRIL
     Indication: Hypertension
     Dosage: 30 MG
     Route: 065
  12. METRONIDAZOLE [Suspect]
     Active Substance: METRONIDAZOLE
     Indication: Diarrhoea infectious
     Dosage: 1500 MG
     Route: 048
     Dates: start: 20210810
  13. LEVOTHYROXINE [Suspect]
     Active Substance: LEVOTHYROXINE
     Indication: Hypothyroidism
     Dosage: 125 MG
     Route: 048
  14. URAPIDIL [Suspect]
     Active Substance: URAPIDIL
     Indication: Hypertension
     Dosage: 60 MG
     Route: 048
     Dates: start: 20210804
  15. NOXAFIL [Suspect]
     Active Substance: POSACONAZOLE
     Indication: Antifungal prophylaxis
     Dosage: 300 MG
     Route: 048
     Dates: start: 20210721
  16. PRIMPERAN [Suspect]
     Active Substance: METOCLOPRAMIDE HYDROCHLORIDE
     Indication: Nausea
     Dosage: 30 MG
     Route: 042
     Dates: start: 20210802
  17. DEXAMETHASONE [Suspect]
     Active Substance: DEXAMETHASONE
     Indication: Nausea
     Dosage: UNK (12 A 4 MG)
     Route: 048
     Dates: start: 20210802, end: 20210806
  18. DEXAMETHASONE [Suspect]
     Active Substance: DEXAMETHASONE
     Indication: Vomiting
  19. SMECTA [Suspect]
     Active Substance: MONTMORILLONITE
     Indication: Diarrhoea
     Dosage: 18 G
     Route: 048
     Dates: start: 20210809
  20. RACECADOTRIL [Suspect]
     Active Substance: RACECADOTRIL
     Indication: Diarrhoea
     Dosage: 300 MG
     Route: 048
     Dates: start: 20210810
  21. AMIKACIN [Suspect]
     Active Substance: AMIKACIN
     Indication: Infection
     Dosage: 1.5 G
     Route: 042
     Dates: start: 20210809, end: 20210810
  22. AMIKACIN [Suspect]
     Active Substance: AMIKACIN
     Dosage: 1.5 G
     Route: 042
     Dates: start: 20210814

REACTIONS (5)
  - Cardiogenic shock [Fatal]
  - Septic shock [Fatal]
  - Aplasia [Fatal]
  - Pyrexia [Fatal]
  - Off label use [Unknown]

NARRATIVE: CASE EVENT DATE: 20210805
